FAERS Safety Report 6577340-3 (Version None)
Quarter: 2010Q1

REPORT INFORMATION
  Report Type: 
  Country: None (occurrence: None)
  Receive Date: 20100210
  Receipt Date: 20100201
  Transmission Date: 20100710
  Serious: Yes (Other)
  Sender: FDA-Public Use
  Company Number: US-ABBOTT-10P-163-0623997-00

PATIENT
  Sex: Male
  Weight: 95.34 kg

DRUGS (7)
  1. HUMIRA [Suspect]
     Indication: RHEUMATOID ARTHRITIS
     Dates: start: 20050101
  2. UNKNOWN STEROID [Concomitant]
     Indication: WOUND INFECTION
  3. LANTUS [Concomitant]
     Indication: DIABETES MELLITUS
     Dosage: IN THE AM
  4. NOVOLOG [Concomitant]
     Indication: DRUG USE FOR UNKNOWN INDICATION
     Dosage: SLIDING SCALE AT NOON, DINNER , AND BED.
  5. METHOTREXATE [Concomitant]
     Indication: RHEUMATOID ARTHRITIS
  6. ACTOS [Concomitant]
     Indication: DIABETES MELLITUS
  7. METFORMIN HYDROCHLORIDE [Concomitant]
     Indication: DIABETES MELLITUS

REACTIONS (4)
  - DIABETES MELLITUS [None]
  - HEADACHE [None]
  - PITUITARY TUMOUR BENIGN [None]
  - WOUND INFECTION [None]
